FAERS Safety Report 4711732-X (Version None)
Quarter: 2005Q2

REPORT INFORMATION
  Report Type: 
  Country: None (occurrence: None)
  Receive Date: 20050629
  Receipt Date: 20050330
  Transmission Date: 20051028
  Serious: No
  Sender: FDA-Public Use
  Company Number: 05P-163-0295508-00

PATIENT
  Age: 72 Year
  Sex: Female
  Weight: 58.0604 kg

DRUGS (16)
  1. HUMIRA [Suspect]
     Indication: RHEUMATOID ARTHRITIS
     Dosage: 40 MG, 1 IN 2 WK, SUBCUTANEOUS
     Route: 058
     Dates: start: 20031001
  2. ALPRAZOLAM [Concomitant]
  3. MULTI-VITAMINS [Concomitant]
  4. CELECOXIB [Concomitant]
  5. FOLIC ACID [Concomitant]
  6. OMEPRAZOLE [Concomitant]
  7. FEXOFENADINE HYDROCHLORIDE [Concomitant]
  8. CLOPIDOGREL BISULFATE [Concomitant]
  9. METHOTREXATE [Concomitant]
  10. ALENDRONATE SODIUM [Concomitant]
  11. ATENOLOL [Concomitant]
  12. ATORVASTATIN CALCIUM [Concomitant]
  13. ESTAZOLAM [Concomitant]
  14. LEXAPRO [Concomitant]
  15. DARVOCET [Concomitant]
  16. COUMADIN [Concomitant]

REACTIONS (2)
  - JOINT RANGE OF MOTION DECREASED [None]
  - MUSCULOSKELETAL STIFFNESS [None]
